FAERS Safety Report 22536434 (Version 1)
Quarter: 2023Q2

REPORT INFORMATION
  Report Type: Report from Study
  Country: IT (occurrence: IT)
  Receive Date: 20230608
  Receipt Date: 20230608
  Transmission Date: 20230721
  Serious: Yes (Hospitalization, Other)
  Sender: FDA-Public Use
  Company Number: None

PATIENT
  Age: 65 Year
  Sex: Male

DRUGS (2)
  1. ZETIA [Suspect]
     Active Substance: EZETIMIBE
     Indication: Hypercholesterolaemia
     Dosage: DOSAGE: NOT PROVIDED. FREQUENCY OF ADMINISTRATION: DAILY. ROUTE OF ADMINISTRATION: ORAL
     Route: 048
  2. AMLODIPINE\INDAPAMIDE\PERINDOPRIL [Concomitant]
     Active Substance: AMLODIPINE\INDAPAMIDE\PERINDOPRIL
     Indication: Essential hypertension
     Dosage: DOSAGE: 5+1.25+5. UNIT OF MEASURE: MILLIGRAMS
     Route: 048

REACTIONS (6)
  - Blood creatine phosphokinase MB increased [Recovering/Resolving]
  - Blood lactate dehydrogenase [Recovering/Resolving]
  - Blood creatine phosphokinase increased [Recovering/Resolving]
  - Aspartate aminotransferase increased [Recovered/Resolved]
  - Troponin T increased [Recovering/Resolving]
  - Dyspnoea exertional [Recovered/Resolved]

NARRATIVE: CASE EVENT DATE: 20230101
